FAERS Safety Report 15724446 (Version 2)
Quarter: 2019Q1

REPORT INFORMATION
  Report Type: Spontaneous
  Country: US (occurrence: US)
  Receive Date: 20181214
  Receipt Date: 20190107
  Transmission Date: 20190417
  Serious: Yes (Life-Threatening, Hospitalization, Other)
  Sender: FDA-Public Use
  Company Number: PHEH2018US051546

PATIENT
  Age: 52 Year
  Sex: Female

DRUGS (1)
  1. EXTAVIA [Suspect]
     Active Substance: INTERFERON BETA-1B
     Indication: MULTIPLE SCLEROSIS
     Dosage: (EVERY OTHER DAY)
     Route: 058
     Dates: start: 201805, end: 201811

REACTIONS (4)
  - Renal failure [Not Recovered/Not Resolved]
  - Haemorrhage [Unknown]
  - Thrombotic thrombocytopenic purpura [Recovered/Resolved with Sequelae]
  - Contusion [Unknown]

NARRATIVE: CASE EVENT DATE: 201810
